FAERS Safety Report 24223921 (Version 1)
Quarter: 2024Q3

REPORT INFORMATION
  Report Type: Spontaneous
  Country: US (occurrence: None)
  Receive Date: 20240817
  Receipt Date: 20240817
  Transmission Date: 20241016
  Serious: Yes (Other)
  Sender: Public
  Company Number: None

PATIENT
  Age: 31 Year
  Sex: Female
  Weight: 54 kg

DRUGS (6)
  1. MONISTAT [Suspect]
     Active Substance: MICONAZOLE NITRATE
     Indication: Vulvovaginal mycotic infection
     Dosage: OTHER QUANTITY : 1 OVULE?OTHER FREQUENCY : ONCE?
     Route: 067
     Dates: start: 20240815, end: 20240815
  2. ZOLOFT [Concomitant]
  3. Adderall XR [Concomitant]
  4. DUPIXENT [Concomitant]
     Active Substance: DUPILUMAB
  5. METHYLATED SUPER [Concomitant]
  6. VITAMIN B COMPLEX [Concomitant]
     Active Substance: CYANOCOBALAMIN\DEXPANTHENOL\NIACINAMIDE\PYRIDOXINE HYDROCHLORIDE\RIBOFLAVIN 5^-PHOSPHATE SODIUM\THIA

REACTIONS (5)
  - Pruritus [None]
  - Vulvovaginal pruritus [None]
  - Vulvovaginal swelling [None]
  - Gait disturbance [None]
  - Loss of personal independence in daily activities [None]

NARRATIVE: CASE EVENT DATE: 20240815
